FAERS Safety Report 5704559-3 (Version None)
Quarter: 2008Q2

REPORT INFORMATION
  Report Type: 
  Country: None (occurrence: None)
  Receive Date: 20080411
  Receipt Date: 20080411
  Transmission Date: 20081010
  Serious: Yes (Life-Threatening, Hospitalization)
  Sender: FDA-Public Use
  Company Number: None

PATIENT
  Age: 28 Year
  Sex: Male
  Weight: 79.3795 kg

DRUGS (2)
  1. SINGULAIR [Suspect]
     Indication: HYPERSENSITIVITY
     Dosage: 10MG  1X DAILY PO
     Route: 048
     Dates: start: 20070105, end: 20080316
  2. SINGULAIR [Suspect]
     Indication: URTICARIA
     Dosage: 10MG  1X DAILY PO
     Route: 048
     Dates: start: 20070105, end: 20080316

REACTIONS (1)
  - SUICIDE ATTEMPT [None]
